FAERS Safety Report 7321237-8 (Version None)
Quarter: 2011Q1

REPORT INFORMATION
  Report Type: 
  Country: None (occurrence: None)
  Receive Date: 20110228
  Receipt Date: 20110218
  Transmission Date: 20110831
  Serious: Yes (Life-Threatening, Disabling, Other)
  Sender: FDA-Public Use
  Company Number: CN-BAYER-2011-015260

PATIENT
  Age: 31 Year
  Sex: Female
  Weight: 70 kg

DRUGS (1)
  1. ULTRAVIST 370 [Suspect]
     Indication: COMPUTERISED TOMOGRAM
     Dosage: UNK
     Dates: start: 20110215, end: 20110215

REACTIONS (6)
  - URINARY INCONTINENCE [None]
  - CONVULSION [None]
  - CEREBRAL INFARCTION [None]
  - DYSPNOEA [None]
  - ALTERED STATE OF CONSCIOUSNESS [None]
  - HEMIPLEGIA [None]
